FAERS Safety Report 9960415 (Version 1)
Quarter: 2014Q1

REPORT INFORMATION
  Report Type: Report from Study
  Country: US (occurrence: US)
  Receive Date: 20140305
  Receipt Date: 20140305
  Transmission Date: 20141002
  Serious: No
  Sender: FDA-Public Use
  Company Number: US-ABBVIE-13P-163-1104592-00

PATIENT
  Age: 57 Year
  Sex: Female
  Weight: 74.91 kg

DRUGS (6)
  1. UNKNOWN MEDICATION [Concomitant]
     Indication: HYPERTENSION
  2. UNKNOWN MEDICATION [Concomitant]
     Indication: ANXIETY
  3. HUMIRA [Suspect]
     Indication: PSORIASIS
     Route: 058
  4. HUMIRA [Suspect]
     Route: 058
  5. HUMIRA [Suspect]
     Route: 058
     Dates: start: 20130516, end: 20130530
  6. HUMIRA [Suspect]
     Route: 058
     Dates: start: 20130530

REACTIONS (2)
  - Psoriasis [Not Recovered/Not Resolved]
  - Sinusitis [Recovered/Resolved]
